FAERS Safety Report 7522971-7 (Version None)
Quarter: 2011Q2

REPORT INFORMATION
  Report Type: 
  Country: None (occurrence: None)
  Receive Date: 20110603
  Receipt Date: 20110527
  Transmission Date: 20111010
  Serious: Yes (Life-Threatening, Hospitalization, Other)
  Sender: FDA-Public Use
  Company Number: US-SANOFI-AVENTIS-2011SA033584

PATIENT
  Age: 60 Year
  Sex: Male

DRUGS (7)
  1. OXALIPLATIN [Suspect]
     Indication: RECTAL CANCER
     Route: 065
  2. NEUPOGEN [Concomitant]
  3. BEVACIZUMAB [Suspect]
     Indication: COLORECTAL CANCER
     Route: 065
  4. FLUOROURACIL [Suspect]
     Indication: RECTAL CANCER
     Route: 065
  5. LEUCOVORIN CALCIUM [Suspect]
     Indication: RECTAL CANCER
     Route: 065
  6. PHENERGAN HCL [Concomitant]
  7. TAMSULOSIN HCL [Concomitant]

REACTIONS (6)
  - TUMOUR LYSIS SYNDROME [None]
  - DIARRHOEA [None]
  - ELECTROLYTE IMBALANCE [None]
  - RENAL FAILURE ACUTE [None]
  - NAUSEA [None]
  - VOMITING [None]
